FAERS Safety Report 7674207-4 (Version None)
Quarter: 2011Q3

REPORT INFORMATION
  Report Type: 
  Country: None (occurrence: None)
  Receive Date: 20110808
  Receipt Date: 20110723
  Transmission Date: 20111222
  Serious: Yes (Hospitalization, Other)
  Sender: FDA-Public Use
  Company Number: AUR-APL-2011-04441

PATIENT
  Age: 62 Year
  Sex: Male
  Weight: 71 kg

DRUGS (3)
  1. TEMSIROLIMUS [Suspect]
     Indication: SQUAMOUS CELL CARCINOMA OF SKIN
     Dosage: (25 MG, 1 WK), INTRAVENOUS
     Route: 042
     Dates: start: 20100621, end: 20110606
  2. DOXIL [Suspect]
     Indication: SQUAMOUS CELL CARCINOMA OF SKIN
     Dosage: (25 MG/M2, 4 WK), INTRAVENOUS
     Route: 042
     Dates: start: 20100621, end: 20110516
  3. METOPROLOL SUCCINATE [Suspect]
     Indication: HYPERTENSION
     Dates: end: 20110601

REACTIONS (11)
  - NEOPLASM PROGRESSION [None]
  - LYMPHOPENIA [None]
  - HAEMOGLOBIN DECREASED [None]
  - ARRHYTHMIA [None]
  - HYPONATRAEMIA [None]
  - HYPOCALCAEMIA [None]
  - NAUSEA [None]
  - VOMITING [None]
  - HYPOKALAEMIA [None]
  - HYPOTENSION [None]
  - SQUAMOUS CELL CARCINOMA OF SKIN [None]
